FAERS Safety Report 16666622 (Version 1)
Quarter: 2019Q3

REPORT INFORMATION
  Report Type: Spontaneous
  Country: FR (occurrence: FR)
  Receive Date: 20190805
  Receipt Date: 20190805
  Transmission Date: 20191004
  Serious: Yes (Hospitalization)
  Sender: FDA-Public Use
  Company Number: FR-TEVA-2019-FR-1087729

PATIENT
  Age: 66 Year
  Sex: Male
  Weight: 88.9 kg

DRUGS (2)
  1. COLCHICINE OPOCALCIUM 1 MG, COMPRIM? [Suspect]
     Active Substance: COLCHICINE
     Indication: GOUT
     Dosage: 1 DOSAGE FORM PER 1 DAY
     Route: 048
     Dates: start: 20190603
  2. ALLOPURINOL. [Suspect]
     Active Substance: ALLOPURINOL
     Indication: PRODUCT USED FOR UNKNOWN INDICATION
     Dosage: 1 DOSAGE FORM PER 1 DAY
     Route: 048
     Dates: start: 201904

REACTIONS (1)
  - Drug reaction with eosinophilia and systemic symptoms [Not Recovered/Not Resolved]

NARRATIVE: CASE EVENT DATE: 20190610
